FAERS Safety Report 7597390-8 (Version None)
Quarter: 2011Q3

REPORT INFORMATION
  Report Type: 
  Country: None (occurrence: None)
  Receive Date: 20110708
  Receipt Date: 20110623
  Transmission Date: 20111222
  Serious: Yes (Other)
  Sender: FDA-Public Use
  Company Number: PHHY2011DZ55642

PATIENT
  Age: 45 Year
  Sex: Female

DRUGS (4)
  1. EXFORGE [Suspect]
     Indication: ESSENTIAL HYPERTENSION
     Dosage: 1 DF, DAILY
     Route: 048
     Dates: start: 20110101, end: 20110601
  2. SPIRONOLACTONE [Concomitant]
  3. BISOPROLOL FUMARATE [Concomitant]
  4. LERCANIDIPINE [Concomitant]

REACTIONS (3)
  - SKIN LESION [None]
  - INFECTION [None]
  - RASH PUSTULAR [None]
